FAERS Safety Report 23604398 (Version 1)
Quarter: 2024Q1

REPORT INFORMATION
  Report Type: Report from Study
  Country: IE (occurrence: IE)
  Receive Date: 20240307
  Receipt Date: 20240307
  Transmission Date: 20240410
  Serious: Yes (Other)
  Sender: FDA-Public Use
  Company Number: IE-Merck Healthcare KGaA-2024011976

PATIENT
  Sex: Female

DRUGS (2)
  1. MAVENCLAD [Suspect]
     Active Substance: CLADRIBINE
     Indication: Relapsing-remitting multiple sclerosis
     Dosage: YEAR ONE WEEK ONE THERAPY. 2 TABLETS ON DAY 1 AND 1 TABLET ON DAYS 2 TO 5.
     Route: 048
     Dates: start: 20230529
  2. MAVENCLAD [Suspect]
     Active Substance: CLADRIBINE
     Dosage: YEAR ONE WEEK FIVE THERAPY. 2 TABLETS ON DAY 1 AND 1 TABLET ON DAYS 2 TO 5.
     Route: 048
     Dates: start: 20230626

REACTIONS (4)
  - Gallbladder disorder [Unknown]
  - Nervous system disorder [Unknown]
  - Neuralgia [Unknown]
  - Multiple sclerosis relapse [Unknown]
